FAERS Safety Report 6600065-2 (Version None)
Quarter: 2010Q1

REPORT INFORMATION
  Report Type: 
  Country: None (occurrence: None)
  Receive Date: 20100224
  Receipt Date: 20100216
  Transmission Date: 20100710
  Serious: Yes (Hospitalization)
  Sender: FDA-Public Use
  Company Number: FR-WYE-G05575810

PATIENT
  Sex: Female

DRUGS (8)
  1. EFFEXOR [Suspect]
     Route: 048
     Dates: start: 20090701, end: 20091119
  2. FLECAINIDE ACETATE [Suspect]
     Route: 048
     Dates: start: 20090701, end: 20091119
  3. LEXOMIL [Concomitant]
  4. SIMVASTATIN [Suspect]
     Route: 048
     Dates: start: 20090701, end: 20091119
  5. NEXIUM [Concomitant]
  6. SINTROM [Concomitant]
  7. ALDACTAZINE [Suspect]
     Route: 048
     Dates: start: 20091016, end: 20091119
  8. DISCOTRINE [Suspect]
     Route: 062
     Dates: start: 20090701, end: 20091119

REACTIONS (7)
  - CONFUSIONAL STATE [None]
  - DISORIENTATION [None]
  - ESCHERICHIA URINARY TRACT INFECTION [None]
  - FALL [None]
  - HYPOCHLORAEMIA [None]
  - HYPONATRAEMIA [None]
  - URINARY RETENTION [None]
